FAERS Safety Report 5994067-7 (Version None)
Quarter: 2008Q4

REPORT INFORMATION
  Report Type: 
  Country: None (occurrence: None)
  Receive Date: 20081212
  Receipt Date: 20080902
  Transmission Date: 20090506
  Serious: No
  Sender: FDA-Public Use
  Company Number: US-ABBOTT-08P-163-0473360-00

PATIENT
  Sex: Female
  Weight: 44.492 kg

DRUGS (8)
  1. HUMIRA [Suspect]
     Indication: PSORIATIC ARTHROPATHY
     Dates: start: 20080729
  2. POLYHIST-DM [Suspect]
     Indication: BRONCHITIS
     Route: 048
     Dates: start: 20080729
  3. ALLEGRA D 24 HOUR [Concomitant]
     Indication: HYPERSENSITIVITY
     Route: 048
     Dates: start: 20040101
  4. MONTELUKAST SODIUM [Concomitant]
     Indication: HYPERSENSITIVITY
     Route: 048
     Dates: start: 20060101
  5. METHOTREXATE [Concomitant]
     Indication: PSORIATIC ARTHROPATHY
     Dosage: 10 TABS EVERY TUESDAY
     Route: 048
     Dates: start: 20080201
  6. FOLIC ACID [Concomitant]
     Indication: VITAMIN SUPPLEMENTATION
     Route: 048
     Dates: start: 20080201
  7. DOZOL [Concomitant]
     Indication: PAIN
     Dates: start: 20080801
  8. ZOLPIDEM TARTRATE [Concomitant]
     Indication: INSOMNIA
     Route: 048
     Dates: start: 20060101

REACTIONS (4)
  - BRONCHITIS [None]
  - HEADACHE [None]
  - NAUSEA [None]
  - VOMITING [None]
